FAERS Safety Report 11198756 (Version 4)
Quarter: 2019Q4

REPORT INFORMATION
  Report Type: Spontaneous
  Country: US (occurrence: US)
  Receive Date: 20150618
  Receipt Date: 20191019
  Transmission Date: 20200122
  Serious: Yes (Other)
  Sender: FDA-Public Use
  Company Number: US-TEVA-571190ACC

PATIENT
  Age: 33 Year
  Sex: Female
  Weight: 57.66 kg

DRUGS (1)
  1. AFTERA [Suspect]
     Active Substance: LEVONORGESTREL
     Indication: POST COITAL CONTRACEPTION
     Dosage: 1.5 MILLIGRAM DAILY;
     Route: 048
     Dates: start: 20150508, end: 20150508

REACTIONS (3)
  - Maternal exposure during pregnancy [Unknown]
  - Normal newborn [Unknown]
  - Pregnancy after post coital contraception [Unknown]

NARRATIVE: CASE EVENT DATE: 20150521
